FAERS Safety Report 4856260-6 (Version None)
Quarter: 2005Q4

REPORT INFORMATION
  Report Type: 
  Country: None (occurrence: None)
  Receive Date: 20051215
  Receipt Date: 20051215
  Transmission Date: 20060501
  Serious: Yes (Hospitalization)
  Sender: FDA-Public Use
  Company Number: None

PATIENT
  Age: 35 Year
  Sex: Male

DRUGS (5)
  1. DICYCLOMINE [Suspect]
     Dosage: 20 MG Q 4 PRN
     Dates: start: 20051212, end: 20051214
  2. TRAZODONE 50 UDL LABS [Suspect]
     Dosage: 50 MG QHS PRN X 2
     Dates: start: 20051212, end: 20051214
  3. DEPAKOTE [Concomitant]
  4. PROZAC [Concomitant]
  5. LORAZEPAM [Concomitant]

REACTIONS (3)
  - CONFUSIONAL STATE [None]
  - DELUSION [None]
  - DISORIENTATION [None]
